FAERS Safety Report 9120577 (Version 1)
Quarter: 2013Q1

REPORT INFORMATION
  Report Type: Spontaneous
  Country: US (occurrence: US)
  Receive Date: 20130226
  Receipt Date: 20130226
  Transmission Date: 20140127
  Serious: No
  Sender: FDA-Public Use
  Company Number: US-ASTRAZENECA-2013SE10864

PATIENT
  Age: 624 Month
  Sex: Male
  Weight: 90.7 kg

DRUGS (3)
  1. QUETIAPINE FUMARATE [Suspect]
     Indication: BIPOLAR I DISORDER
     Dosage: QUETIAPINE FUMARATE 400 MG DAILY
     Route: 048
     Dates: start: 201210, end: 201302
  2. QUETIAPINE FUMARATE [Suspect]
     Indication: BIPOLAR I DISORDER
     Dosage: SEROQUEL  400 MG DAILY
     Route: 048
     Dates: start: 201302
  3. PROZAC [Concomitant]
     Indication: DEPRESSION

REACTIONS (5)
  - Nausea [Recovered/Resolved]
  - Body height decreased [Not Recovered/Not Resolved]
  - Tremor [Recovered/Resolved]
  - Irritability [Recovered/Resolved]
  - Weight increased [Not Recovered/Not Resolved]
